FAERS Safety Report 5744540-1 (Version None)
Quarter: 2008Q2

REPORT INFORMATION
  Report Type: 
  Country: None (occurrence: None)
  Receive Date: 20080520
  Receipt Date: 20080425
  Transmission Date: 20081010
  Serious: No
  Sender: FDA-Public Use
  Company Number: US-BOEHRINGER INGELHEIM GMBH, GERMANY-2008-BP-06565BP

PATIENT
  Sex: Female

DRUGS (1)
  1. ATROVENT [Suspect]
     Indication: RHINITIS
     Dosage: 2-4 SPRAYS EACH NOSTRILS (1-2 SPRAYS EACH NOSTRILS BID)
     Route: 045

REACTIONS (1)
  - DRUG INEFFECTIVE [None]
